FAERS Safety Report 5746567-2 (Version None)
Quarter: 2008Q2

REPORT INFORMATION
  Report Type: 
  Country: None (occurrence: None)
  Receive Date: 20080522
  Receipt Date: 20080514
  Transmission Date: 20081010
  Serious: Yes (Hospitalization)
  Sender: FDA-Public Use
  Company Number: US-MERCK-0801USA05752

PATIENT
  Age: 51 Year
  Sex: Female
  Weight: 62 kg

DRUGS (2)
  1. FOSAMAX [Suspect]
     Indication: OSTEOPOROSIS PROPHYLAXIS
     Route: 048
     Dates: start: 20040101, end: 20060401
  2. FOSAMAX [Suspect]
     Indication: OSTEOPENIA
     Route: 048
     Dates: start: 20040101, end: 20060401

REACTIONS (12)
  - ABSCESS [None]
  - BRONCHITIS [None]
  - DENTAL CARIES [None]
  - EDENTULOUS [None]
  - HERPES ZOSTER [None]
  - HYPOAESTHESIA FACIAL [None]
  - ORAL INFECTION [None]
  - PAIN [None]
  - PNEUMONIA [None]
  - RADICULITIS BRACHIAL [None]
  - RESORPTION BONE INCREASED [None]
  - TOOTH LOSS [None]
